FAERS Safety Report 14070593 (Version 2)
Quarter: 2017Q4

REPORT INFORMATION
  Report Type: Report from Study
  Country: IT (occurrence: IT)
  Receive Date: 20171011
  Receipt Date: 20171025
  Transmission Date: 20180321
  Serious: Yes (Hospitalization)
  Sender: FDA-Public Use
  Company Number: IT-ROCHE-2002703

PATIENT
  Age: 71 Year
  Sex: Male
  Weight: 54 kg

DRUGS (7)
  1. PANTOPRAZOLE [Concomitant]
     Active Substance: PANTOPRAZOLE
     Indication: GASTROOESOPHAGEAL REFLUX DISEASE
     Route: 048
     Dates: start: 20170222
  2. VALSARTAN. [Concomitant]
     Active Substance: VALSARTAN
     Indication: HYPERTENSION
     Route: 048
     Dates: start: 20170222
  3. CALCIUM FOLINATE [Suspect]
     Active Substance: LEUCOVORIN CALCIUM
     Indication: COLORECTAL CANCER METASTATIC
     Dosage: DOSE OF MOST RECENT ADMINISTRATION PRIOR TO SAE DATE: 20/SEP/2017 (25%).ASTHENIA GRADE 3 AND DIARRHE
     Route: 065
     Dates: start: 20170820
  4. PANTOPRAZOLE [Concomitant]
     Active Substance: PANTOPRAZOLE
     Route: 065
     Dates: start: 20170222
  5. BEVACIZUMAB. [Suspect]
     Active Substance: BEVACIZUMAB
     Indication: COLORECTAL CANCER METASTATIC
     Dosage: NUMBER OF CYCLE PRIOR TO SAE SECOND LINE : 2 CYCLES. MANINTAINANCE PHASE AFTER FIRST LINE.?NUMBER OF
     Route: 065
     Dates: start: 20170829
  6. 5-FU [Suspect]
     Active Substance: FLUOROURACIL
     Indication: COLORECTAL CANCER METASTATIC
     Dosage: DOSE OF MOST RECENT ADMINISTRATION PRIOR TO SAE DATE: 20/SEP/2017 (25%).ASTHENIA GRADE 3 AND DIARRHE
     Route: 065
     Dates: start: 20170820
  7. IRINOTECAN [Suspect]
     Active Substance: IRINOTECAN
     Indication: COLORECTAL CANCER METASTATIC
     Dosage: DOSE OF MOST RECENT ADMINISTRATION PRIOR TO SAE DATE: 20/SEP/2017 (25%).ASTHENIA GRADE 3 AND DIARRHE
     Route: 065
     Dates: start: 20170820

REACTIONS (4)
  - Decreased appetite [Recovered/Resolved]
  - Ill-defined disorder [Recovered/Resolved]
  - Asthenia [Recovered/Resolved]
  - Confusional state [Recovered/Resolved]

NARRATIVE: CASE EVENT DATE: 20170927
